FAERS Safety Report 15395315 (Version 2)
Quarter: 2018Q3

REPORT INFORMATION
  Report Type: Spontaneous
  Country: US (occurrence: US)
  Receive Date: 20180918
  Receipt Date: 20180920
  Transmission Date: 20181010
  Serious: No
  Sender: FDA-Public Use
  Company Number: US-PFIZER INC-2018370428

PATIENT
  Age: 68 Year
  Sex: Female
  Weight: 65.77 kg

DRUGS (2)
  1. NICOTROL [Suspect]
     Active Substance: NICOTINE
     Indication: SMOKING CESSATION THERAPY
     Dosage: UNK
     Dates: start: 20180815, end: 20180815
  2. NICOTROL [Suspect]
     Active Substance: NICOTINE
     Indication: DYSPNOEA

REACTIONS (3)
  - Wrong technique in product usage process [Unknown]
  - Product taste abnormal [Unknown]
  - Drug ineffective [Unknown]

NARRATIVE: CASE EVENT DATE: 2018
